FAERS Safety Report 5050885-3 (Version None)
Quarter: 2006Q3

REPORT INFORMATION
  Report Type: 
  Country: None (occurrence: None)
  Receive Date: 20060710
  Receipt Date: 20060627
  Transmission Date: 20061208
  Serious: Yes (Death)
  Sender: FDA-Public Use
  Company Number: 2006080923

PATIENT
  Age: 79 Year
  Sex: Female

DRUGS (5)
  1. ZYVOX [Suspect]
     Indication: MENINGITIS TUBERCULOUS
     Dosage: 1200 MG (1200 MG, DAILY), INTRAVENOUS
     Route: 042
     Dates: start: 20060608, end: 20060612
  2. PIRALDINA (PYRAZINAMIDE) [Concomitant]
  3. RIFADIN [Concomitant]
  4. NICOZID (ISONIAZID) [Concomitant]
  5. ETAPIAM (ETHAMBUTOL DIHYDROCHLORIDE) [Concomitant]

REACTIONS (2)
  - HYPONATRAEMIA [None]
  - VOMITING [None]
